FAERS Safety Report 21782832 (Version 1)
Quarter: 2022Q4

REPORT INFORMATION
  Report Type: Report from Study
  Country: CA (occurrence: CA)
  Receive Date: 20221227
  Receipt Date: 20221227
  Transmission Date: 20230112
  Serious: Yes (Other)
  Sender: FDA-Public Use
  Company Number: CA-MYLANLABS-2022M1144430

PATIENT
  Sex: Male

DRUGS (8)
  1. TOPIRAMATE [Suspect]
     Active Substance: TOPIRAMATE
     Indication: Epileptic encephalopathy
     Dosage: UNK
     Route: 065
  2. GABAPENTIN [Suspect]
     Active Substance: GABAPENTIN
     Indication: Epileptic encephalopathy
     Dosage: UNK
     Route: 065
  3. VALPROIC ACID [Suspect]
     Active Substance: VALPROIC ACID
     Indication: Epileptic encephalopathy
     Dosage: UNK
     Route: 065
  4. PHENYTOIN [Suspect]
     Active Substance: PHENYTOIN
     Indication: Epileptic encephalopathy
     Dosage: UNK
     Route: 065
  5. CLONAZEPAM [Suspect]
     Active Substance: CLONAZEPAM
     Indication: Epileptic encephalopathy
     Dosage: UNK
     Route: 065
  6. CLOBAZAM [Suspect]
     Active Substance: CLOBAZAM
     Indication: Epileptic encephalopathy
     Dosage: UNK
     Route: 065
  7. CORTICOTROPIN [Suspect]
     Active Substance: CORTICOTROPIN
     Indication: Epileptic encephalopathy
     Dosage: UNK
     Route: 065
  8. PREDNISONE [Suspect]
     Active Substance: PREDNISONE
     Indication: Epileptic encephalopathy
     Dosage: UNK
     Route: 065

REACTIONS (3)
  - Drug ineffective [Unknown]
  - Rash [Unknown]
  - Off label use [Unknown]
